FAERS Safety Report 5941183-1 (Version None)
Quarter: 2008Q4

REPORT INFORMATION
  Report Type: 
  Country: None (occurrence: None)
  Receive Date: 20081104
  Receipt Date: 20081023
  Transmission Date: 20090506
  Serious: Yes (Death, Hospitalization)
  Sender: FDA-Public Use
  Company Number: FR-PFIZER INC-2000017615FR

PATIENT
  Age: 67 Year
  Sex: Male
  Weight: 78.8 kg

DRUGS (14)
  1. ARTHROTEC [Suspect]
     Indication: BACK PAIN
     Dosage: FREQ:QD
     Route: 048
     Dates: start: 20000216, end: 20000217
  2. ARTHROTEC [Suspect]
     Indication: MUSCULOSKELETAL PAIN
  3. SOLU-MEDROL [Suspect]
     Route: 042
     Dates: start: 20000218
  4. MEDROL [Suspect]
     Route: 048
  5. THIOCOLCHISOSIDE [Suspect]
     Dates: start: 20000216
  6. VOLTAREN [Suspect]
     Dates: start: 20000216
  7. DEPAKENE [Suspect]
     Route: 048
  8. EQUANIL [Suspect]
     Route: 048
  9. EPINEPHRINE [Suspect]
     Route: 058
     Dates: start: 20000218
  10. PENTOXIFILLINE [Concomitant]
  11. CALCIUM [Concomitant]
  12. BUFLOMEDIL [Concomitant]
  13. ACETYLSALICYLIC ACID SRT [Concomitant]
  14. UREA [Concomitant]

REACTIONS (5)
  - ANGIOEDEMA [None]
  - ARTERIAL THROMBOSIS [None]
  - CHILLS [None]
  - MALAISE [None]
  - PRURITUS [None]
